FAERS Safety Report 8584084-5 (Version None)
Quarter: 2012Q3

REPORT INFORMATION
  Report Type: 
  Country: None (occurrence: None)
  Receive Date: 20120810
  Receipt Date: 20120731
  Transmission Date: 20120928
  Serious: No
  Sender: FDA-Public Use
  Company Number: US-009507513-1208USA000487

PATIENT

DRUGS (2)
  1. REBETOL [Suspect]
     Dosage: UNK
     Route: 048
  2. PEG-INTRON [Suspect]
     Indication: HEPATITIS C
     Dosage: UNK UNK, QW
     Dates: start: 20120727

REACTIONS (4)
  - AGEUSIA [None]
  - ORAL HERPES [None]
  - DECREASED APPETITE [None]
  - CHILLS [None]
